FAERS Safety Report 23934187 (Version 4)
Quarter: 2024Q3

REPORT INFORMATION
  Report Type: Spontaneous
  Country: JP (occurrence: JP)
  Receive Date: 20240603
  Receipt Date: 20240719
  Transmission Date: 20241016
  Serious: Yes (Hospitalization)
  Sender: DAIICHI
  Company Number: JP-DSJP-DSJ-2024-123914

PATIENT
  Age: 85 Year
  Sex: Female
  Weight: 56.9 kg

DRUGS (10)
  1. EDOXABAN TOSYLATE [Suspect]
     Active Substance: EDOXABAN TOSYLATE
     Indication: Deep vein thrombosis
     Dosage: 60 MG, QD
     Route: 048
  2. EDOXABAN TOSYLATE [Suspect]
     Active Substance: EDOXABAN TOSYLATE
     Indication: Atrial fibrillation
     Dosage: 30 MG, QD
     Route: 048
  3. TENELIGLIPTIN [Concomitant]
     Active Substance: TENELIGLIPTIN
     Indication: Product used for unknown indication
     Dosage: 20 MG, QD
     Route: 048
  4. BERIZYM [ENZYMES NOS] [Concomitant]
     Indication: Product used for unknown indication
     Dosage: 2 G/DAY
     Route: 065
  5. GLUTAMINE\SODIUM DECAHYDROAZULENE-1-SULFONATE [Concomitant]
     Active Substance: GLUTAMINE\SODIUM DECAHYDROAZULENE-1-SULFONATE
     Indication: Product used for unknown indication
     Dosage: 2 G/DAY, TID
     Route: 065
  6. LOPERAMIDE HYDROCHLORIDE [Concomitant]
     Active Substance: LOPERAMIDE HYDROCHLORIDE
     Indication: Product used for unknown indication
     Dosage: 1 MG, QD
     Route: 065
  7. URSODIOL [Concomitant]
     Active Substance: URSODIOL
     Indication: Product used for unknown indication
     Dosage: 200 MG, TID
     Route: 065
  8. FLOPROPIONE [Concomitant]
     Active Substance: FLOPROPIONE
     Indication: Product used for unknown indication
     Dosage: 40 MG, TID
     Route: 065
  9. BIOFERMIN [BIFIDOBACTERIUM BIFIDUM] [Concomitant]
     Indication: Product used for unknown indication
     Dosage: 1 DF, TID
     Route: 065
  10. AMLODIPINE [Concomitant]
     Active Substance: AMLODIPINE BESYLATE
     Indication: Product used for unknown indication
     Dosage: 2.5 MG, QD
     Route: 065

REACTIONS (3)
  - Haemorrhage subcutaneous [Recovered/Resolved]
  - Fall [Recovered/Resolved]
  - Immobilisation syndrome [Recovered/Resolved]

NARRATIVE: CASE EVENT DATE: 20240509
